FAERS Safety Report 21348086 (Version 1)
Quarter: 2022Q3

REPORT INFORMATION
  Report Type: Spontaneous
  Country: US (occurrence: US)
  Receive Date: 20220919
  Receipt Date: 20220919
  Transmission Date: 20221027
  Serious: Yes (Other)
  Sender: FDA-Public Use
  Company Number: US-JNJFOC-20220922679

PATIENT
  Sex: Female

DRUGS (1)
  1. TYLENOL EXTRA STRENGTH [Suspect]
     Active Substance: ACETAMINOPHEN
     Indication: Pain
     Dosage: WAS UNSURE OF DOSING SAID MIGHT BE 2 TO 3 TIMES PER DAY BUT DID NOT KNOW FOR HOW LONG OR FOR WHAT PA
     Route: 065

REACTIONS (1)
  - Liver disorder [Unknown]
